FAERS Safety Report 22166287 (Version 1)
Quarter: 2023Q2

REPORT INFORMATION
  Report Type: Report from Study
  Country: HN (occurrence: HN)
  Receive Date: 20230403
  Receipt Date: 20230403
  Transmission Date: 20230721
  Serious: Yes (Other)
  Sender: FDA-Public Use
  Company Number: HN-MYLANLABS-2023M1033821

PATIENT
  Age: 71 Year
  Sex: Male
  Weight: 60.78 kg

DRUGS (2)
  1. LIPITOR [Suspect]
     Active Substance: ATORVASTATIN CALCIUM
     Indication: Arterial occlusive disease
     Dosage: 1 DOSAGE FORM, QD
     Route: 048
     Dates: start: 202202
  2. LIPITOR [Suspect]
     Active Substance: ATORVASTATIN CALCIUM
     Indication: Arterial occlusive disease
     Dosage: 1 DOSAGE FORM, QD
     Route: 048

REACTIONS (4)
  - Liver injury [Not Recovered/Not Resolved]
  - Illness [Not Recovered/Not Resolved]
  - Wrong technique in product usage process [Not Recovered/Not Resolved]
  - Off label use [Not Recovered/Not Resolved]

NARRATIVE: CASE EVENT DATE: 20230322
